FAERS Safety Report 15928909 (Version 1)
Quarter: 2019Q1

REPORT INFORMATION
  Report Type: Spontaneous
  Country: FR (occurrence: FR)
  Receive Date: 20190206
  Receipt Date: 20190206
  Transmission Date: 20190417
  Serious: Yes (Death, Other)
  Sender: FDA-Public Use
  Company Number: FR-MYLANLABS-2019M1010297

PATIENT
  Age: 73 Year
  Sex: Male

DRUGS (4)
  1. ACETYLSALICYLIC ACID [Concomitant]
     Active Substance: ASPIRIN
     Indication: PRODUCT USED FOR UNKNOWN INDICATION
     Dosage: 500 MILLIGRAM
     Route: 065
  2. ACTILYSE [Suspect]
     Active Substance: ALTEPLASE
     Indication: INTESTINAL ISCHAEMIA
     Dosage: UNK
     Route: 042
  3. HEPARIN [Suspect]
     Active Substance: HEPARIN SODIUM
     Indication: INTESTINAL ISCHAEMIA
     Dosage: INFUSION
     Route: 042
  4. STREPTOKINASE [Suspect]
     Active Substance: STREPTOKINASE
     Indication: INTESTINAL ISCHAEMIA
     Dosage: DAILY DOSE :250000 UNITS
     Route: 013

REACTIONS (4)
  - Puncture site haemorrhage [Unknown]
  - Mesenteric haematoma [Unknown]
  - Shock [Fatal]
  - Multiple organ dysfunction syndrome [Fatal]
